FAERS Safety Report 21513068 (Version 1)
Quarter: 2022Q4

REPORT INFORMATION
  Report Type: Spontaneous
  Country: US (occurrence: US)
  Receive Date: 20221027
  Receipt Date: 20221027
  Transmission Date: 20230113
  Serious: Yes (Death, Life-Threatening, Hospitalization, Other)
  Sender: FDA-Public Use
  Company Number: US-drreddys-SPO/USA/22/0156235

PATIENT
  Age: 64 Year
  Sex: Female

DRUGS (3)
  1. CARVEDILOL [Suspect]
     Active Substance: CARVEDILOL
     Indication: Suicide attempt
  2. NIFEDIPINE [Suspect]
     Active Substance: NIFEDIPINE
     Indication: Suicide attempt
  3. LOSARTAN [Suspect]
     Active Substance: LOSARTAN
     Indication: Suicide attempt

REACTIONS (2)
  - Shock [Fatal]
  - Intentional overdose [Fatal]
